APPROVED DRUG PRODUCT: PIPERAZINE CITRATE
Active Ingredient: PIPERAZINE CITRATE
Strength: EQ 250MG BASE
Dosage Form/Route: TABLET;ORAL
Application: A080874 | Product #001
Applicant: IMPAX LABORATORIES INC
Approved: Approved Prior to Jan 1, 1982 | RLD: No | RS: No | Type: DISCN